FAERS Safety Report 4284004-8 (Version None)
Quarter: 2004Q1

REPORT INFORMATION
  Report Type: 
  Country: None (occurrence: None)
  Receive Date: 20040130
  Receipt Date: 20040114
  Transmission Date: 20041129
  Serious: Yes (Hospitalization)
  Sender: FDA-Public Use
  Company Number: US_040199962

PATIENT
  Age: 81 Year
  Sex: Female
  Weight: 75 kg

DRUGS (1)
  1. HUMULIN L [Suspect]

REACTIONS (6)
  - BLOOD GLUCOSE INCREASED [None]
  - COUGH [None]
  - DIARRHOEA [None]
  - HEADACHE [None]
  - MEDICATION ERROR [None]
  - VOMITING [None]
